FAERS Safety Report 14590833 (Version 1)
Quarter: 2018Q1

REPORT INFORMATION
  Report Type: Spontaneous
  Country: US (occurrence: US)
  Receive Date: 20180302
  Receipt Date: 20180302
  Transmission Date: 20180509
  Serious: Yes (Hospitalization)
  Sender: FDA-Public Use
  Company Number: US-JNJFOC-20180236850

PATIENT
  Age: 63 Year
  Sex: Male

DRUGS (1)
  1. INVOKAMET [Suspect]
     Active Substance: CANAGLIFLOZIN\METFORMIN HYDROCHLORIDE
     Indication: PRODUCT USED FOR UNKNOWN INDICATION
     Route: 048

REACTIONS (4)
  - Cellulitis [Unknown]
  - Toe amputation [Unknown]
  - Osteomyelitis chronic [Recovering/Resolving]
  - Tenotomy [Unknown]

NARRATIVE: CASE EVENT DATE: 201611
